FAERS Safety Report 24117969 (Version 6)
Quarter: 2024Q3

REPORT INFORMATION
  Report Type: Spontaneous
  Country: CN (occurrence: CN)
  Receive Date: 20240722
  Receipt Date: 20240925
  Transmission Date: 20241016
  Serious: Yes (Other)
  Sender: BOEHRINGER INGELHEIM
  Company Number: CN-BoehringerIngelheim-2024-BI-040778

PATIENT
  Sex: Female

DRUGS (2)
  1. SPEVIGO [Suspect]
     Active Substance: SPESOLIMAB-SBZO
     Indication: Generalised pustular psoriasis
     Route: 042
     Dates: start: 20240618, end: 20240618
  2. SPEVIGO [Suspect]
     Active Substance: SPESOLIMAB-SBZO
     Route: 042
     Dates: start: 20240719, end: 20240719

REACTIONS (7)
  - Anaphylactic shock [Recovering/Resolving]
  - Hyperpyrexia [Recovered/Resolved]
  - Erythema [Recovering/Resolving]
  - Vomiting [Recovering/Resolving]
  - Urticaria [Recovering/Resolving]
  - Maternal exposure during pregnancy [Unknown]
  - Product quality issue [Unknown]

NARRATIVE: CASE EVENT DATE: 20240717
